FAERS Safety Report 8615201-6 (Version None)
Quarter: 2012Q3

REPORT INFORMATION
  Report Type: 
  Country: None (occurrence: None)
  Receive Date: 20120823
  Receipt Date: 20120814
  Transmission Date: 20120928
  Serious: Yes (Hospitalization)
  Sender: FDA-Public Use
  Company Number: PR-ABBOTT-12P-131-0953313-00

PATIENT
  Sex: Male

DRUGS (6)
  1. ULTRACET [Concomitant]
     Indication: PSORIATIC ARTHROPATHY
     Route: 048
  2. PROTONIX [Concomitant]
     Indication: OESOPHAGEAL ULCER
     Route: 048
  3. PROTONIX [Concomitant]
     Indication: DUODENAL ULCER
  4. BETAMETHASONE [Concomitant]
     Indication: PSORIATIC ARTHROPATHY
     Dosage: BID
     Route: 061
  5. UNKNOWN MEDICATION TO TREAT INFLAMMATION [Concomitant]
     Indication: PSORIATIC ARTHROPATHY
     Route: 048
  6. HUMIRA [Suspect]
     Indication: PSORIATIC ARTHROPATHY
     Route: 058
     Dates: start: 20120608

REACTIONS (1)
  - URINARY TRACT OBSTRUCTION [None]
